FAERS Safety Report 11522722 (Version 1)
Quarter: 2015Q3

REPORT INFORMATION
  Report Type: Spontaneous
  Country: US (occurrence: US)
  Receive Date: 20150918
  Receipt Date: 20150918
  Transmission Date: 20151125
  Serious: No
  Sender: FDA-Public Use
  Company Number: US-ROCHE-734181

PATIENT
  Age: 51 Year
  Sex: Male

DRUGS (3)
  1. RIBAVIRIN. [Suspect]
     Active Substance: RIBAVIRIN
     Indication: HEPATITIS C
     Dosage: THE PATIENT WAS IN WEEK 4 OF THERAPY.
     Route: 048
  2. PEGASYS [Suspect]
     Active Substance: PEGINTERFERON ALFA-2A
     Indication: HEPATITIS C
     Dosage: THE PATIENT WAS IN WEEK 4 OF THERAPY.
     Route: 058
  3. MORPHINE [Concomitant]
     Active Substance: MORPHINE
     Indication: BACK PAIN
     Route: 065

REACTIONS (1)
  - Influenza like illness [Not Recovered/Not Resolved]

NARRATIVE: CASE EVENT DATE: 20101013
